FAERS Safety Report 4615210-8 (Version None)
Quarter: 2005Q1

REPORT INFORMATION
  Report Type: 
  Country: None (occurrence: None)
  Receive Date: 20050317
  Receipt Date: 20050304
  Transmission Date: 20050727
  Serious: Yes (Death)
  Sender: FDA-Public Use
  Company Number: 200503IM000053

PATIENT
  Age: 42 Year
  Sex: Male

DRUGS (5)
  1. INFERGEN [Suspect]
     Indication: HEPATITIS C
     Dosage: 15 UG, QD, SUBCUTANEOUS
     Route: 058
     Dates: start: 20041101
  2. ALDACTAZIDE [Concomitant]
  3. LORTAB [Concomitant]
  4. EFFEXOR [Concomitant]
  5. METAMUCIL-2 [Concomitant]

REACTIONS (1)
  - MYOCARDIAL INFARCTION [None]
